FAERS Safety Report 15314871 (Version 2)
Quarter: 2018Q3

REPORT INFORMATION
  Report Type: Spontaneous
  Country: JP (occurrence: JP)
  Receive Date: 20180824
  Receipt Date: 20180829
  Transmission Date: 20181010
  Serious: Yes (Hospitalization)
  Sender: FDA-Public Use
  Company Number: JP-ABBVIE-18S-087-2460699-00

PATIENT
  Age: 79 Year
  Sex: Male

DRUGS (2)
  1. NORVIR [Suspect]
     Active Substance: RITONAVIR
     Indication: PRODUCT USED FOR UNKNOWN INDICATION
     Route: 051
  2. NORVIR [Suspect]
     Active Substance: RITONAVIR
     Route: 048

REACTIONS (3)
  - Wrong technique in product usage process [Unknown]
  - Dialysis [Unknown]
  - Incorrect route of drug administration [Unknown]
